FAERS Safety Report 24416083 (Version 1)
Quarter: 2024Q4

REPORT INFORMATION
  Report Type: Spontaneous
  Country: US (occurrence: US)
  Receive Date: 20241009
  Receipt Date: 20241009
  Transmission Date: 20250114
  Serious: No
  Sender: CELLTRION
  Company Number: US-CELLTRION INC.-2024US008648

PATIENT

DRUGS (8)
  1. INFLIXIMAB [Suspect]
     Active Substance: INFLIXIMAB
     Indication: Granulomatous liver disease
     Dosage: 5 MG/KG
  2. ADALIMUMAB [Suspect]
     Active Substance: ADALIMUMAB
     Indication: Granulomatous liver disease
     Dosage: 50 MG, EVERY 2 WEEKS
  3. PREDNISONE [Suspect]
     Active Substance: PREDNISONE
     Indication: Granulomatous liver disease
     Dosage: 40 MG
  4. PREDNISONE [Suspect]
     Active Substance: PREDNISONE
     Dosage: 2.5 MG, DAILY
  5. METHOTREXATE [Suspect]
     Active Substance: METHOTREXATE
     Indication: Granulomatous liver disease
     Dosage: 5 MG
  6. METHOTREXATE [Suspect]
     Active Substance: METHOTREXATE
     Dosage: 25 MG
     Route: 058
  7. CERTOLIZUMAB PEGOL [Suspect]
     Active Substance: CERTOLIZUMAB PEGOL
     Indication: Granulomatous liver disease
     Dosage: 400 MG INITIAL DOSE
  8. CERTOLIZUMAB PEGOL [Suspect]
     Active Substance: CERTOLIZUMAB PEGOL
     Dosage: 200 MG, EVERY 2 WEEKS FOR MAINTENANCE

REACTIONS (2)
  - Drug specific antibody present [Unknown]
  - Intentional product use issue [Unknown]
